FAERS Safety Report 11233955 (Version 1)
Quarter: 2015Q3

REPORT INFORMATION
  Report Type: Spontaneous
  Country: JP (occurrence: JP)
  Receive Date: 20150702
  Receipt Date: 20150702
  Transmission Date: 20151125
  Serious: Yes (Other)
  Sender: FDA-Public Use
  Company Number: JP-CIPLA LTD.-2015JP05118

PATIENT

DRUGS (3)
  1. ENALAPLIL [Suspect]
     Active Substance: ENALAPRIL
     Indication: CARDIAC FAILURE
     Dosage: 5 MG, QD
     Route: 065
  2. SPIRONOLACTONE. [Suspect]
     Active Substance: SPIRONOLACTONE
     Indication: CARDIAC FAILURE
     Dosage: 50 MG, QD FOR MORE THAN 6 MONTHS
     Route: 065
  3. CARVEDILOL. [Suspect]
     Active Substance: CARVEDILOL
     Indication: CARDIAC FAILURE
     Dosage: 20 MG/DAY TIRATED TO 40 MG/DAY
     Route: 065

REACTIONS (4)
  - Ejection fraction decreased [Unknown]
  - Cardiac failure chronic [None]
  - Drug ineffective [None]
  - Condition aggravated [None]
